FAERS Safety Report 4305351-7 (Version None)
Quarter: 2004Q1

REPORT INFORMATION
  Report Type: 
  Country: None (occurrence: None)
  Receive Date: 20040226
  Receipt Date: 20030708
  Transmission Date: 20041129
  Serious: Yes (Hospitalization)
  Sender: FDA-Public Use
  Company Number: US-BRISTOL-MYERS SQUIBB COMPANY-12320784

PATIENT
  Age: 59 Year
  Sex: Male

DRUGS (3)
  1. CARBOPLATIN [Suspect]
     Indication: NEOPLASM MALIGNANT
     Dosage: DOSE = AUC 6, THEN AUC 4
     Route: 042
     Dates: start: 20020501, end: 20020601
  2. PACLITAXEL [Suspect]
     Indication: NEOPLASM MALIGNANT
     Route: 042
     Dates: start: 20020501, end: 20020601
  3. DARVOCET [Concomitant]

REACTIONS (1)
  - SKIN ULCER [None]
